FAERS Safety Report 8363237-5 (Version None)
Quarter: 2012Q2

REPORT INFORMATION
  Report Type: 
  Country: None (occurrence: None)
  Receive Date: 20120516
  Receipt Date: 20120508
  Transmission Date: 20120825
  Serious: Yes (Hospitalization, Other)
  Sender: FDA-Public Use
  Company Number: US-UCBSA-057016

PATIENT
  Sex: Female
  Weight: 57.15 kg

DRUGS (10)
  1. HYDROCHLOROTHIAZIDE [Concomitant]
  2. MERCAPTOPURINE [Concomitant]
     Indication: CROHN'S DISEASE
     Dates: start: 20101201, end: 20110701
  3. BUDESONIDE [Concomitant]
     Indication: CROHN'S DISEASE
     Dates: end: 20110201
  4. HUMIRA [Suspect]
     Indication: CROHN'S DISEASE
     Route: 058
     Dates: start: 20100426, end: 20100927
  5. CYANOCOBALAMIN [Concomitant]
  6. CIMZIA [Suspect]
     Indication: CROHN'S DISEASE
     Dates: start: 20101013, end: 20110701
  7. ATENOLOL [Concomitant]
     Indication: BLOOD PRESSURE
  8. ORTHO TRI-CYCLEN [Concomitant]
  9. METRONIDAZOLE [Concomitant]
  10. ALBUTEROL SULFATE AUTOHALER [Concomitant]

REACTIONS (6)
  - CROHN'S DISEASE [None]
  - NAUSEA [None]
  - GASTROINTESTINAL STOMA COMPLICATION [None]
  - RASH [None]
  - ABDOMINAL PAIN [None]
  - FATIGUE [None]
